FAERS Safety Report 9785325 (Version 2)
Quarter: 2013Q4

REPORT INFORMATION
  Report Type: Spontaneous
  Country: US (occurrence: US)
  Receive Date: 20131227
  Receipt Date: 20131227
  Transmission Date: 20140711
  Serious: No
  Sender: FDA-Public Use
  Company Number: US-MYLANLABS-2013S1008705

PATIENT
  Age: 61 Year
  Sex: Male
  Weight: 81.65 kg

DRUGS (3)
  1. CITALOPRAM [Suspect]
     Indication: DEPRESSION
     Dosage: PATIENT TAKES ONE-HALF OF A 20MG TABLET, DAILY.
     Route: 048
     Dates: start: 20130417
  2. EFFEXOR XR [Concomitant]
     Indication: DEPRESSION
     Route: 048
  3. METOPROLOL [Concomitant]
     Route: 048

REACTIONS (4)
  - Abdominal distension [Recovered/Resolved]
  - Diarrhoea [Recovered/Resolved]
  - Gastrointestinal pain [Recovered/Resolved]
  - Flatulence [Recovered/Resolved]
